FAERS Safety Report 8769986 (Version 1)
Quarter: 2012Q4

REPORT INFORMATION
  Report Type: 
  Country: US (occurrence: US)
  Receive Date: 20120906
  Receipt Date: 20120906
  Transmission Date: 20130627
  Serious: No
  Sender: FDA-Public Use
  Company Number: US-JHP PHARMACEUTICALS, LLC-JHP201200236

PATIENT

DRUGS (1)
  1. BREVITAL SODIUM FOR INJECTION [Suspect]
     Indication: ANAESTHESIA PROCEDURE
     Dosage: 50 mg, UNK
     Dates: start: 201204, end: 201204

REACTIONS (2)
  - Agitation postoperative [Recovered/Resolved]
  - Product quality issue [None]
